FAERS Safety Report 6388928-7 (Version None)
Quarter: 2009Q4

REPORT INFORMATION
  Report Type: 
  Country: None (occurrence: None)
  Receive Date: 20091005
  Receipt Date: 20090930
  Transmission Date: 20100525
  Serious: Yes (Hospitalization, Disabling)
  Sender: FDA-Public Use
  Company Number: RO-MERCK-0910USA00068

PATIENT
  Age: 22 Year
  Sex: Female
  Weight: 50 kg

DRUGS (5)
  1. ISENTRESS [Suspect]
     Indication: HIV INFECTION
     Route: 048
     Dates: start: 20071101
  2. DARUNAVIR [Concomitant]
     Indication: HIV INFECTION
     Route: 065
     Dates: start: 20071101
  3. NORVIR [Concomitant]
     Indication: HIV INFECTION
     Route: 065
     Dates: start: 20030101
  4. EPIVIR [Concomitant]
     Indication: HIV INFECTION
     Route: 065
     Dates: start: 20030101
  5. RETROVIR [Concomitant]
     Indication: HIV INFECTION
     Route: 065
     Dates: start: 20030101

REACTIONS (1)
  - OSTEONECROSIS [None]
